FAERS Safety Report 20596855 (Version 1)
Quarter: 2022Q1

REPORT INFORMATION
  Report Type: Other
  Country: US (occurrence: None)
  Receive Date: 20220315
  Receipt Date: 20220315
  Transmission Date: 20220423
  Serious: Yes (Other)
  Sender: FDA-Public Use
  Company Number: US-ROCHE-3042610

PATIENT
  Sex: Male

DRUGS (5)
  1. OCREVUS [Suspect]
     Active Substance: OCRELIZUMAB
     Indication: Relapsing multiple sclerosis
     Dosage: 600 MG EVERY 6 MONTHS
     Route: 042
  2. BIOTIN [Concomitant]
     Active Substance: BIOTIN
     Dosage: DAILY
     Route: 048
  3. VITAMIN D2 [Concomitant]
     Active Substance: ERGOCALCIFEROL
     Dosage: 2000 UNITS DAILY
     Route: 048
  4. SERTRALINE [Concomitant]
     Active Substance: SERTRALINE HYDROCHLORIDE
     Dosage: 1 TABLET BY MOUTH DAILY
  5. IMIQUIMOD [Concomitant]
     Active Substance: IMIQUIMOD

REACTIONS (8)
  - Neuropathy peripheral [Unknown]
  - Retinal disorder [Unknown]
  - Major depression [Unknown]
  - White blood cell count decreased [Unknown]
  - Neutrophil count decreased [Unknown]
  - B-lymphocyte count decreased [Unknown]
  - Blood immunoglobulin M decreased [Unknown]
  - Anogenital warts [Unknown]
